FAERS Safety Report 14294089 (Version 1)
Quarter: 2017Q4

REPORT INFORMATION
  Report Type: Spontaneous
  Country: FR (occurrence: FR)
  Receive Date: 20171217
  Receipt Date: 20171217
  Transmission Date: 20180321
  Serious: Yes (Life-Threatening, Hospitalization, Other)
  Sender: FDA-Public Use
  Company Number: FR-CIPLA LTD.-2017FR24825

PATIENT

DRUGS (5)
  1. ETOPOSIDE. [Suspect]
     Active Substance: ETOPOSIDE
     Indication: ATYPICAL TERATOID/RHABDOID TUMOUR OF CNS
     Dosage: 50 MG/M2, UNK
     Route: 065
  2. BEVACIZUMAB. [Suspect]
     Active Substance: BEVACIZUMAB
     Indication: ATYPICAL TERATOID/RHABDOID TUMOUR OF CNS
     Dosage: 10 MG/KG, (DAYS 1, 15) ; CYCLICAL
     Route: 042
     Dates: start: 201604
  3. CYTARABINE. [Suspect]
     Active Substance: CYTARABINE
     Indication: ATYPICAL TERATOID/RHABDOID TUMOUR OF CNS
     Dosage: 35 MG, (DAY 1) ; CYCLICAL
     Route: 037
     Dates: start: 201604
  4. CYCLOPHOSPHAMIDE. [Suspect]
     Active Substance: CYCLOPHOSPHAMIDE
     Indication: ATYPICAL TERATOID/RHABDOID TUMOUR OF CNS
     Dosage: 2.5 MG/KG, CYCLIC ALTERNATING 21 DAY CYCLES ; CYCLICAL
     Route: 065
     Dates: start: 201604
  5. CELECOXIB. [Suspect]
     Active Substance: CELECOXIB
     Indication: ATYPICAL TERATOID/RHABDOID TUMOUR OF CNS
     Dosage: 400 MG, CONTINUOUS
     Route: 048

REACTIONS (5)
  - Product use issue [Unknown]
  - Neutropenia [Recovered/Resolved]
  - Influenza [Unknown]
  - Product use in unapproved indication [Unknown]
  - Asthenia [Unknown]
